FAERS Safety Report 10488802 (Version 1)
Quarter: 2014Q3

REPORT INFORMATION
  Report Type: Spontaneous
  Country: US (occurrence: None)
  Receive Date: 20140815
  Receipt Date: 20140815
  Transmission Date: 20150326
  Serious: Yes (Hospitalization, Other)
  Sender: FDA-Public Use
  Company Number: ADR-2013-02031

PATIENT
  Age: 18 Year
  Sex: Male

DRUGS (2)
  1. LIORESAL(BACLOFEN) [Concomitant]
  2. LIORESAL [Suspect]
     Active Substance: BACLOFEN
     Indication: MUSCLE SPASTICITY

REACTIONS (4)
  - Wound dehiscence [None]
  - Implant site discharge [None]
  - Implant site infection [None]
  - Pyrexia [None]
